FAERS Safety Report 8172731-1 (Version None)
Quarter: 2012Q1

REPORT INFORMATION
  Report Type: 
  Country: None (occurrence: None)
  Receive Date: 20120229
  Receipt Date: 20120221
  Transmission Date: 20120608
  Serious: Yes (Other)
  Sender: FDA-Public Use
  Company Number: US-SANOFI-AVENTIS-2012SA011686

PATIENT
  Sex: Male

DRUGS (3)
  1. LANTUS [Suspect]
     Dosage: DOSE:28 UNIT(S)
     Route: 058
     Dates: start: 20051101
  2. SOLOSTAR [Suspect]
     Dates: start: 20051101
  3. HUMALOG [Suspect]
     Dosage: WITH MEALS
     Route: 065

REACTIONS (2)
  - ADVERSE REACTION [None]
  - BLINDNESS [None]
